FAERS Safety Report 13057871 (Version 1)
Quarter: 2016Q4

REPORT INFORMATION
  Report Type: Spontaneous
  Country: US (occurrence: US)
  Receive Date: 20161223
  Receipt Date: 20161223
  Transmission Date: 20170207
  Serious: No
  Sender: FDA-Public Use
  Company Number: None

PATIENT
  Age: 54 Year
  Sex: Male
  Weight: 69 kg

DRUGS (3)
  1. CARBOPLATIN. [Suspect]
     Active Substance: CARBOPLATIN
     Dates: end: 20161128
  2. TAXOL [Suspect]
     Active Substance: PACLITAXEL
     Dates: end: 20161128
  3. METFORMIN HYDROCHLORIDE. [Suspect]
     Active Substance: METFORMIN HYDROCHLORIDE
     Dates: end: 20161220

REACTIONS (9)
  - White blood cell count increased [None]
  - Subclavian vein thrombosis [None]
  - Catheter site swelling [None]
  - Haemoglobin decreased [None]
  - Catheter site erythema [None]
  - Catheter site pain [None]
  - Pyrexia [None]
  - Venous occlusion [None]
  - Platelet count decreased [None]

NARRATIVE: CASE EVENT DATE: 20161212
